FAERS Safety Report 4377354-8 (Version None)
Quarter: 2004Q2

REPORT INFORMATION
  Report Type: 
  Country: None (occurrence: None)
  Receive Date: 20040609
  Receipt Date: 20040527
  Transmission Date: 20050107
  Serious: Yes (Hospitalization)
  Sender: FDA-Public Use
  Company Number: IT-2004-025781

PATIENT
  Age: 88 Year
  Sex: Female

DRUGS (6)
  1. ULTRAVIST 240 [Suspect]
     Indication: VENOGRAM
     Dosage: 80 ML, UNK, INTRAVENOUS
     Route: 042
     Dates: start: 20040504, end: 20040504
  2. ERYTHROPOIETIN HUMAN (ERYTHROPOIETIN HUMAN) [Concomitant]
  3. CORDARONE [Concomitant]
  4. ROCALTROL CAPSULE [Concomitant]
  5. KAYEXALATE [Concomitant]
  6. FERLIXIT (FERRIC SODIUM GLUCONATE COMPLEX) [Concomitant]

REACTIONS (4)
  - LEUKOPENIA [None]
  - STEVENS-JOHNSON SYNDROME [None]
  - THROMBOCYTOPENIA [None]
  - TRANSAMINASES INCREASED [None]
